FAERS Safety Report 16328062 (Version 1)
Quarter: 2019Q2

REPORT INFORMATION
  Report Type: Spontaneous
  Country: FR (occurrence: FR)
  Receive Date: 20190518
  Receipt Date: 20190518
  Transmission Date: 20190711
  Serious: Yes (Life-Threatening, Hospitalization, Other)
  Sender: FDA-Public Use
  Company Number: FR-AUROBINDO-AUR-APL-2019-025819

PATIENT

DRUGS (4)
  1. ZYPREXA [Interacting]
     Active Substance: OLANZAPINE
     Indication: ANXIETY
     Dosage: UNK
     Route: 065
  2. ABILIFY [Interacting]
     Active Substance: ARIPIPRAZOLE
     Indication: PSYCHOTIC DISORDER
     Dosage: DURATION:5 OR 6 MONTHS
     Route: 048
     Dates: start: 20120411, end: 20120608
  3. LYSANXIA [Suspect]
     Active Substance: PRAZEPAM
     Indication: ANXIETY
     Dosage: 20 MG, QD
     Route: 048
     Dates: start: 201109
  4. OLANZAPINE FILM-COATED TABLET [Suspect]
     Active Substance: OLANZAPINE
     Indication: ANXIETY
     Dosage: UNK
     Route: 065

REACTIONS (7)
  - Off label use [Unknown]
  - Malaise [Recovered/Resolved]
  - Bundle branch block right [Recovered/Resolved]
  - Ventricular arrhythmia [Recovering/Resolving]
  - Loss of consciousness [Unknown]
  - Delusion [Unknown]
  - Drug interaction [Unknown]

NARRATIVE: CASE EVENT DATE: 2012
